FAERS Safety Report 6200566-5 (Version None)
Quarter: 2009Q2

REPORT INFORMATION
  Report Type: 
  Country: None (occurrence: None)
  Receive Date: 20090522
  Receipt Date: 20090513
  Transmission Date: 20091009
  Serious: Yes (Death, Hospitalization)
  Sender: FDA-Public Use
  Company Number: US-AMGEN-QUU332990

PATIENT
  Sex: Female

DRUGS (2)
  1. ENBREL [Suspect]
     Indication: PSORIATIC ARTHROPATHY
     Dosage: UNSPECIFIED
  2. ADALIMUMAB [Concomitant]
     Route: 058

REACTIONS (4)
  - DEATH [None]
  - FATIGUE [None]
  - HEPATIC ENZYME INCREASED [None]
  - VOMITING [None]
